FAERS Safety Report 14269499 (Version 3)
Quarter: 2018Q2

REPORT INFORMATION
  Report Type: Spontaneous
  Country: US (occurrence: US)
  Receive Date: 20171211
  Receipt Date: 20180523
  Transmission Date: 20180711
  Serious: Yes (Other)
  Sender: FDA-Public Use
  Company Number: US-PTC THERAPEUTICS, INC.-US-2017PTC001525

PATIENT

DRUGS (2)
  1. EMFLAZA [Suspect]
     Active Substance: DEFLAZACORT
     Indication: DUCHENNE MUSCULAR DYSTROPHY
     Dosage: 36 MG, QD
     Route: 048
     Dates: start: 20170906, end: 20171204
  2. EMFLAZA [Suspect]
     Active Substance: DEFLAZACORT
     Dosage: 36 MG QD
     Route: 048
     Dates: start: 20170712, end: 201803

REACTIONS (4)
  - Visual impairment [Unknown]
  - Weight increased [Unknown]
  - Idiopathic intracranial hypertension [Unknown]
  - Papilloedema [Unknown]

NARRATIVE: CASE EVENT DATE: 2017
